FAERS Safety Report 10581325 (Version 1)
Quarter: 2014Q4

REPORT INFORMATION
  Report Type: Spontaneous
  Country: US (occurrence: US)
  Receive Date: 20141113
  Receipt Date: 20141113
  Transmission Date: 20150529
  Serious: Yes (Other)
  Sender: FDA-Public Use
  Company Number: US-CIPLA LTD.-2014US01753

PATIENT

DRUGS (3)
  1. DOCETAXEL. [Suspect]
     Active Substance: DOCETAXEL
     Indication: NEOPLASM
     Dosage: 75 MG/M2 INTRAVENOUSLY ON CYCLE 1, DAY 1  EVERY 3 WEEKS
  2. CARBOPLATIN. [Suspect]
     Active Substance: CARBOPLATIN
     Indication: NEOPLASM
     Dosage: AUC 6 MG/ML/MIN,INTRAVENOUSLY ON CYCLE 1, DAY 1  EVERY 3 WEEKS
  3. TRASTUZUMAB [Suspect]
     Active Substance: TRASTUZUMAB
     Indication: NEOPLASM
     Dosage: INTRAVENOUSLY AT 6 MG/KG ON CYCLE 1, DAY 2AND CYCLE 1, DAY 8, FOLLOWED BY 6 MG/KG ON DAY 1

REACTIONS (1)
  - Left ventricular dysfunction [Recovered/Resolved]
